FAERS Safety Report 11161930 (Version 1)
Quarter: 2015Q2

REPORT INFORMATION
  Report Type: Spontaneous
  Country: US (occurrence: None)
  Receive Date: 20150603
  Receipt Date: 20150603
  Transmission Date: 20150821
  Serious: No
  Sender: FDA-Public Use
  Company Number: None

PATIENT
  Age: 72 Year
  Sex: Female

DRUGS (1)
  1. TECFIDERA [Suspect]
     Active Substance: DIMETHYL FUMARATE
     Indication: MULTIPLE SCLEROSIS
     Dosage: ROUTE: ORAL  STRENGTH: 240 MG  DOSE FORM: ORAL  FREQUENCY: BID
     Route: 048
     Dates: start: 201306

REACTIONS (3)
  - Pruritus [None]
  - Flushing [None]
  - Alopecia [None]

NARRATIVE: CASE EVENT DATE: 20150527
